FAERS Safety Report 4293293-5 (Version None)
Quarter: 2004Q1

REPORT INFORMATION
  Report Type: 
  Country: None (occurrence: None)
  Receive Date: 20040126
  Receipt Date: 20031029
  Transmission Date: 20041129
  Serious: No
  Sender: FDA-Public Use
  Company Number: USA031050753

PATIENT
  Age: 77 Year
  Sex: Female

DRUGS (4)
  1. FORTEO [Suspect]
  2. CALCIUM [Concomitant]
  3. ANTACID TAB [Concomitant]
  4. XANAX [Concomitant]

REACTIONS (3)
  - HAIR GROWTH ABNORMAL [None]
  - INJECTION SITE HAEMORRHAGE [None]
  - WEIGHT INCREASED [None]
